FAERS Safety Report 23515910 (Version 1)
Quarter: 2024Q1

REPORT INFORMATION
  Report Type: Spontaneous
  Country: IT (occurrence: IT)
  Receive Date: 20240213
  Receipt Date: 20240213
  Transmission Date: 20240409
  Serious: Yes (Hospitalization, Other)
  Sender: FDA-Public Use
  Company Number: None

PATIENT
  Age: 48 Year
  Sex: Female
  Weight: 80 kg

DRUGS (6)
  1. CARBOPLATIN [Suspect]
     Active Substance: CARBOPLATIN
     Indication: Lung adenocarcinoma
     Dosage: 530 MILLIGRAM
     Route: 042
     Dates: start: 20231228, end: 20231228
  2. IPILIMUMAB [Suspect]
     Active Substance: IPILIMUMAB
     Indication: Lung adenocarcinoma
     Dosage: 80 MILLIGRAM
     Route: 065
     Dates: start: 20231228, end: 20231228
  3. NIVOLUMAB [Suspect]
     Active Substance: NIVOLUMAB
     Dosage: 360 MILLIGRAM
     Route: 042
     Dates: start: 20231228, end: 20231228
  4. NIVOLUMAB [Suspect]
     Active Substance: NIVOLUMAB
     Indication: Lung adenocarcinoma
     Dosage: 360 MILLIGRAM
     Route: 042
     Dates: start: 20231228, end: 20231228
  5. PEMETREXED [Suspect]
     Active Substance: PEMETREXED
     Indication: Lung adenocarcinoma
     Dosage: 880 MILLIGRAM
     Route: 042
     Dates: start: 20231228, end: 20231228
  6. PEMETREXED [Suspect]
     Active Substance: PEMETREXED
     Dosage: 880 MILLIGRAM
     Route: 042
     Dates: start: 20231228, end: 20231228

REACTIONS (8)
  - Pancreatitis [Not Recovered/Not Resolved]
  - Pyrexia [Recovered/Resolved]
  - Diarrhoea [Recovering/Resolving]
  - Nausea [Recovered/Resolved]
  - Thrombocytopenia [Recovering/Resolving]
  - Abdominal pain [Recovering/Resolving]
  - Neutropenia [Recovered/Resolved]
  - Vomiting [Recovering/Resolving]

NARRATIVE: CASE EVENT DATE: 20240102
